FAERS Safety Report 23896715 (Version 1)
Quarter: 2024Q2

REPORT INFORMATION
  Report Type: Spontaneous
  Country: US (occurrence: US)
  Receive Date: 20240524
  Receipt Date: 20240524
  Transmission Date: 20240716
  Serious: No
  Sender: FDA-Public Use
  Company Number: US-Calliditas-2024CAL00763

PATIENT
  Age: 30 Year
  Sex: Female
  Weight: 98.9 kg

DRUGS (1)
  1. TARPEYO [Suspect]
     Active Substance: BUDESONIDE
     Indication: Nephrotic syndrome
     Route: 048
     Dates: start: 20231213

REACTIONS (2)
  - Increased tendency to bruise [Unknown]
  - Off label use [Unknown]
